FAERS Safety Report 20533331 (Version 1)
Quarter: 2022Q1

REPORT INFORMATION
  Report Type: Spontaneous
  Country: JP (occurrence: JP)
  Receive Date: 20220301
  Receipt Date: 20220301
  Transmission Date: 20220423
  Serious: Yes (Other)
  Sender: FDA-Public Use
  Company Number: JP-Eisai-202112264_LUN_P_1

PATIENT
  Age: 19 Year
  Sex: Female

DRUGS (2)
  1. LUNESTA [Suspect]
     Active Substance: ESZOPICLONE
     Dosage: 1MG
     Route: 048
     Dates: start: 202112, end: 20220216
  2. CLOTIAZEPAM [Concomitant]
     Active Substance: CLOTIAZEPAM
     Dosage: DOSE UNKNOWN
     Route: 048
     Dates: start: 202112

REACTIONS (2)
  - Hallucination, auditory [Unknown]
  - Hallucination [Unknown]

NARRATIVE: CASE EVENT DATE: 20211222
